FAERS Safety Report 24114559 (Version 2)
Quarter: 2025Q2

REPORT INFORMATION
  Report Type: Report from Study
  Country: US (occurrence: US)
  Receive Date: 20240720
  Receipt Date: 20250509
  Transmission Date: 20250716
  Serious: No
  Sender: AMGEN
  Company Number: US-AMGEN-USASP2024143434

PATIENT
  Age: 63 Year
  Sex: Female

DRUGS (1)
  1. TEPEZZA [Suspect]
     Active Substance: TEPROTUMUMAB-TRBW
     Indication: Endocrine ophthalmopathy
     Dosage: 1 UNK, Q3WK FOR 8 INFUSIONS
     Route: 042
     Dates: start: 20240305

REACTIONS (3)
  - Alopecia [Unknown]
  - Visual impairment [Unknown]
  - Weight decreased [Unknown]
